FAERS Safety Report 16379641 (Version 1)
Quarter: 2019Q2

REPORT INFORMATION
  Report Type: Spontaneous
  Country: US (occurrence: US)
  Receive Date: 20190531
  Receipt Date: 20190531
  Transmission Date: 20190711
  Serious: Yes (Other)
  Sender: FDA-Public Use
  Company Number: US-GE HEALTHCARE LIFE SCIENCES-2019CSU002789

PATIENT
  Age: 76 Year
  Sex: Female

DRUGS (6)
  1. OMNIPAQUE [Suspect]
     Active Substance: IOHEXOL
     Indication: EPIDURAL INJECTION
     Dosage: UNK UNK, SINGLE
     Route: 008
     Dates: start: 2018, end: 2018
  2. KENALOG [Suspect]
     Active Substance: TRIAMCINOLONE ACETONIDE
     Indication: BACK PAIN
  3. NORMAL SALINE [Suspect]
     Active Substance: SODIUM CHLORIDE
     Indication: EPIDURAL INJECTION
     Dosage: UNK
     Route: 008
     Dates: start: 2018, end: 2018
  4. KENALOG [Suspect]
     Active Substance: TRIAMCINOLONE ACETONIDE
     Indication: EPIDURAL INJECTION
     Dosage: UNK
     Route: 008
     Dates: start: 2018, end: 2018
  5. NORMAL SALINE [Suspect]
     Active Substance: SODIUM CHLORIDE
     Indication: BACK PAIN
  6. OMNIPAQUE [Suspect]
     Active Substance: IOHEXOL
     Indication: BACK PAIN

REACTIONS (7)
  - Off label use [Recovered/Resolved]
  - Internal haemorrhage [Not Recovered/Not Resolved]
  - Back pain [Not Recovered/Not Resolved]
  - Dysstasia [Not Recovered/Not Resolved]
  - Fall [Unknown]
  - Anaemia [Recovering/Resolving]
  - Spinal cord infection [Unknown]

NARRATIVE: CASE EVENT DATE: 20190115
